FAERS Safety Report 18756576 (Version 1)
Quarter: 2021Q1

REPORT INFORMATION
  Report Type: Spontaneous
  Country: NZ (occurrence: NZ)
  Receive Date: 20210119
  Receipt Date: 20210119
  Transmission Date: 20210419
  Serious: Yes (Other)
  Sender: FDA-Public Use
  Company Number: NZ-CASPER PHARMA LLC-2021CAS000001

PATIENT
  Age: 25 Year
  Sex: Male

DRUGS (1)
  1. PENICILLIN G BENZATHINE [Suspect]
     Active Substance: PENICILLIN G BENZATHINE
     Indication: PRODUCT USED FOR UNKNOWN INDICATION
     Dosage: UNK
     Route: 065

REACTIONS (2)
  - Corneal disorder [Recovering/Resolving]
  - Stevens-Johnson syndrome [Unknown]
